FAERS Safety Report 4654762-9 (Version None)
Quarter: 2005Q2

REPORT INFORMATION
  Report Type: 
  Country: None (occurrence: None)
  Receive Date: 20050506
  Receipt Date: 20040107
  Transmission Date: 20051028
  Serious: Yes (Death)
  Sender: FDA-Public Use
  Company Number: JP-ROCHE-355171

PATIENT
  Age: 22 Month
  Sex: Female

DRUGS (10)
  1. TORSEMIDE [Suspect]
     Route: 048
     Dates: start: 20010114, end: 20010329
  2. TORSEMIDE [Suspect]
     Route: 048
     Dates: start: 20010330, end: 20010417
  3. TORSEMIDE [Suspect]
     Route: 048
     Dates: start: 20010418, end: 20010510
  4. TORSEMIDE [Suspect]
     Route: 048
     Dates: start: 20010510, end: 20021001
  5. RENIVACE [Suspect]
     Indication: CARDIAC FAILURE
     Route: 048
     Dates: end: 20021001
  6. ALDACTONE-A [Concomitant]
     Dates: end: 20021001
  7. ASPARA K [Concomitant]
     Dates: end: 20021001
  8. DIGOSIN [Concomitant]
     Dates: end: 20021001
  9. PHENOBAL [Concomitant]
     Dates: end: 20021001
  10. DEPAKENE [Concomitant]
     Dates: end: 20021001

REACTIONS (6)
  - CARDIAC FAILURE [None]
  - HYPOXIC ENCEPHALOPATHY [None]
  - MYOCARDIAL FIBROSIS [None]
  - RENAL FAILURE [None]
  - SEPSIS [None]
  - THERAPY NON-RESPONDER [None]
